FAERS Safety Report 19927106 (Version 1)
Quarter: 2021Q4

REPORT INFORMATION
  Report Type: Spontaneous
  Country: CN (occurrence: CN)
  Receive Date: 20211006
  Receipt Date: 20211006
  Transmission Date: 20220303
  Serious: Yes (Hospitalization)
  Sender: FDA-Public Use
  Company Number: CN-BAXTER-2021BAX026333

PATIENT
  Age: 49 Year
  Sex: Female
  Weight: 65 kg

DRUGS (16)
  1. CYCLOPHOSPHAMIDE [Suspect]
     Active Substance: CYCLOPHOSPHAMIDE
     Indication: Breast cancer
     Dosage: CYCLOPHOSPHAMIDE POWDER FOR INJECTION 1G + 0.9% SODIUM CHLORIDE INJECTION 100ML (THIRD CYCLE OF CHEM
     Route: 041
     Dates: start: 20201018, end: 20201018
  2. CYCLOPHOSPHAMIDE [Suspect]
     Active Substance: CYCLOPHOSPHAMIDE
     Dosage: FIRST CYCLE OF CHEMOTHERAPY
     Route: 041
     Dates: start: 20200901, end: 20200901
  3. CYCLOPHOSPHAMIDE [Suspect]
     Active Substance: CYCLOPHOSPHAMIDE
     Dosage: SECOND CYCLE OF CHEMOTHERAPY
     Route: 041
     Dates: start: 20200923, end: 20200923
  4. CYCLOPHOSPHAMIDE [Suspect]
     Active Substance: CYCLOPHOSPHAMIDE
     Dosage: DOSE RE-INTRODUCED
     Route: 041
  5. SODIUM CHLORIDE [Suspect]
     Active Substance: SODIUM CHLORIDE
     Indication: Medication dilution
     Dosage: CYCLOPHOSPHAMIDE POWDER FOR INJECTION 1G + 0.9% NACL INJECTION 100ML (FIRST CYCLE OF CHEMOTHERAPY)
     Route: 041
     Dates: start: 20200901, end: 20200901
  6. SODIUM CHLORIDE [Suspect]
     Active Substance: SODIUM CHLORIDE
     Dosage: CYCLOPHOSPHAMIDE POWDER FOR INJECTION 1G + 0.9% NACL INJECTION 100ML (SECOND CYCLE OF CHEMOTHERAPY)
     Route: 041
     Dates: start: 20200923, end: 20200923
  7. SODIUM CHLORIDE [Suspect]
     Active Substance: SODIUM CHLORIDE
     Dosage: CYCLOPHOSPHAMIDE POWDER FOR INJECTION 1G + 0.9% NACL INJECTION 100ML (THIRD CYCLE OF CHEMOTHERAPY)
     Route: 041
     Dates: start: 20201018, end: 20201018
  8. SODIUM CHLORIDE [Suspect]
     Active Substance: SODIUM CHLORIDE
     Dosage: EPIRUBICIN HYDROCHLORIDE POWDER FOR INJECTION 120MG + 0.9% NACL INJECTION 250ML (FIRST CYCLE)
     Route: 041
     Dates: start: 20200901, end: 20200901
  9. SODIUM CHLORIDE [Suspect]
     Active Substance: SODIUM CHLORIDE
     Dosage: EPIRUBICIN HYDROCHLORIDE POWDER FOR INJECTION 120MG + 0.9% NACL INJECTION 250ML (SECOND CYCLE)
     Route: 041
     Dates: start: 20200923, end: 20200923
  10. SODIUM CHLORIDE [Suspect]
     Active Substance: SODIUM CHLORIDE
     Dosage: EPIRUBICIN HYDROCHLORIDE POWDER FOR INJECTION 120MG + 0.9% NACL INJECTION 250ML (THIRD CYCLE)
     Route: 041
     Dates: start: 20201018, end: 20201018
  11. SODIUM CHLORIDE [Suspect]
     Active Substance: SODIUM CHLORIDE
     Dosage: DOSE RE-INTRODUCED WITH CYCLOPHOSPHAMIDE
     Route: 041
  12. SODIUM CHLORIDE [Suspect]
     Active Substance: SODIUM CHLORIDE
     Dosage: DOSE RE-INTRODUCED WITH EPIRUBICIN HYDROCHLORIDE
     Route: 041
  13. EPIRUBICIN HYDROCHLORIDE [Suspect]
     Active Substance: EPIRUBICIN HYDROCHLORIDE
     Indication: Breast cancer
     Dosage: EPIRUBICIN HYDROCHLORIDE POWDER FOR INJECTION 120MG + 0.9% SODIUM CHLORIDE INJECTION 250ML (THIRD CY
     Route: 041
     Dates: start: 20201018, end: 20201018
  14. EPIRUBICIN HYDROCHLORIDE [Suspect]
     Active Substance: EPIRUBICIN HYDROCHLORIDE
     Dosage: EPIRUBICIN HYDROCHLORIDE POWDER FOR INJECTION 120MG + 0.9% SODIUM CHLORIDE INJECTION 250ML (FIRST CY
     Route: 041
     Dates: start: 20200901, end: 20200901
  15. EPIRUBICIN HYDROCHLORIDE [Suspect]
     Active Substance: EPIRUBICIN HYDROCHLORIDE
     Dosage: EPIRUBICIN HYDROCHLORIDE POWDER FOR INJECTION 120MG + 0.9% SODIUM CHLORIDE INJECTION 250ML (SECOND C
     Route: 041
     Dates: start: 20200923, end: 20200923
  16. EPIRUBICIN HYDROCHLORIDE [Suspect]
     Active Substance: EPIRUBICIN HYDROCHLORIDE
     Dosage: DOSE RE-INTRODUCED
     Route: 041

REACTIONS (3)
  - Nausea [Recovering/Resolving]
  - Vomiting [Recovering/Resolving]
  - Myelosuppression [Recovering/Resolving]

NARRATIVE: CASE EVENT DATE: 20201102
